FAERS Safety Report 7369839-7 (Version None)
Quarter: 2011Q1

REPORT INFORMATION
  Report Type: 
  Country: None (occurrence: None)
  Receive Date: 20110323
  Receipt Date: 20110302
  Transmission Date: 20110831
  Serious: Yes (Death, Hospitalization, Other)
  Sender: FDA-Public Use
  Company Number: US-BAYER-2011-016738

PATIENT
  Age: 60 Year
  Sex: Female
  Weight: 71 kg

DRUGS (11)
  1. SORAFENIB (RAF KINASE INHIBITOR) [Suspect]
     Indication: HEPATIC NEOPLASM MALIGNANT
     Dosage: 400 MG, BID
     Route: 048
     Dates: start: 20101206, end: 20101220
  2. DOXORUBICIN [Suspect]
     Indication: HEPATIC NEOPLASM MALIGNANT
     Dosage: 100 MG, ONCE
     Route: 013
     Dates: start: 20101213, end: 20101213
  3. HYDROCHLOROTHIAZIDE [Concomitant]
     Dosage: 25 MG, UNK
  4. DOXORUBICIN [Suspect]
     Dosage: 45 MG, ONCE
     Route: 013
     Dates: start: 20110131, end: 20110131
  5. LASIX [Concomitant]
     Indication: OEDEMA PERIPHERAL
     Dosage: 20 MG, QD
     Dates: start: 20110107
  6. SORAFENIB (RAF KINASE INHIBITOR) [Suspect]
     Dosage: 400 MG, QD
     Route: 048
     Dates: start: 20110120, end: 20110131
  7. PROPRANOLOL [Concomitant]
     Dosage: 10 MG, BID
     Dates: start: 20101220
  8. XIFAXAN [Concomitant]
     Indication: ENCEPHALOPATHY
     Dosage: 550 MG, BID
     Dates: start: 20101220
  9. NADOLOL [Concomitant]
     Dosage: 40 MG, QD
  10. SPIRONOLACTONE [Concomitant]
     Indication: OEDEMA PERIPHERAL
     Dosage: 50 MG, QD
     Dates: start: 20110107
  11. PROPRANOLOL [Concomitant]
     Dosage: 10 MG, BID
     Dates: start: 20101220

REACTIONS (11)
  - HYPERTENSION [None]
  - PERITONITIS BACTERIAL [None]
  - RENAL FAILURE ACUTE [None]
  - HEPATIC ENCEPHALOPATHY [None]
  - DEATH [None]
  - HYPOTENSION [None]
  - MENTAL STATUS CHANGES [None]
  - ASTHENIA [None]
  - GENERALISED OEDEMA [None]
  - HYPERBILIRUBINAEMIA [None]
  - HYPOTHERMIA [None]
